FAERS Safety Report 23068418 (Version 1)
Quarter: 2023Q4

REPORT INFORMATION
  Report Type: Spontaneous
  Country: None (occurrence: US)
  Receive Date: 20231016
  Receipt Date: 20231016
  Transmission Date: 20240110
  Serious: Yes (Hospitalization)
  Sender: FDA-Public Use
  Company Number: US-B.Braun Medical Inc.-2147122

PATIENT
  Age: 7 Year
  Sex: Male

DRUGS (4)
  1. CEFOXITIN AND DEXTROSE [Suspect]
     Active Substance: CEFOXITIN SODIUM
     Indication: Blood culture positive
  2. AZITHROMYCIN [Suspect]
     Active Substance: AZITHROMYCIN
  3. IMIPENEM [Suspect]
     Active Substance: IMIPENEM
  4. AMIKACIN [Suspect]
     Active Substance: AMIKACIN

REACTIONS (3)
  - Acute kidney injury [None]
  - Drug ineffective for unapproved indication [None]
  - Product administered to patient of inappropriate age [None]
